FAERS Safety Report 4465019-3 (Version None)
Quarter: 2004Q4

REPORT INFORMATION
  Report Type: 
  Country: None (occurrence: None)
  Receive Date: 20041004
  Receipt Date: 20040702
  Transmission Date: 20050328
  Serious: Yes (Hospitalization)
  Sender: FDA-Public Use
  Company Number: JP-ROCHE-373071

PATIENT
  Age: 64 Year
  Sex: Male
  Weight: 60.8 kg

DRUGS (7)
  1. PEGASYS [Suspect]
     Indication: HEPATITIS C
     Route: 058
     Dates: start: 20040419
  2. SUMIFERON [Suspect]
     Indication: HEPATITIS C
     Route: 030
     Dates: start: 20000515, end: 20001014
  3. SUMIFERON [Suspect]
     Route: 030
     Dates: start: 20001016, end: 20021006
  4. SUMIFERON [Suspect]
     Route: 030
     Dates: start: 20021008, end: 20040416
  5. URSO [Concomitant]
     Route: 048
  6. MAZULENE S [Concomitant]
     Route: 048
  7. TSUKUSHI AM [Concomitant]
     Route: 048

REACTIONS (1)
  - GASTRIC CANCER [None]
